FAERS Safety Report 7138880-1 (Version None)
Quarter: 2010Q4

REPORT INFORMATION
  Report Type: 
  Country: None (occurrence: None)
  Receive Date: 20101202
  Receipt Date: 20101202
  Transmission Date: 20110411
  Serious: Yes (Other)
  Sender: FDA-Public Use
  Company Number: None

PATIENT
  Age: 40 Year
  Sex: Female
  Weight: 133.8111 kg

DRUGS (1)
  1. AMITRIPTYLINE HYDROCHLORIDE [Suspect]
     Indication: ANALGESIC THERAPY
     Dosage: 10 MG ONCE NIGHTLY PO
     Route: 048

REACTIONS (6)
  - FEELING JITTERY [None]
  - HALLUCINATION, VISUAL [None]
  - IRRITABILITY [None]
  - MANIA [None]
  - MOOD SWINGS [None]
  - PARANOIA [None]
